FAERS Safety Report 8611628-7 (Version None)
Quarter: 2012Q3

REPORT INFORMATION
  Report Type: 
  Country: None (occurrence: None)
  Receive Date: 20120822
  Receipt Date: 20120214
  Transmission Date: 20120928
  Serious: No
  Sender: FDA-Public Use
  Company Number: BR-ROCHE-1040280

PATIENT
  Sex: Female
  Weight: 65 kg

DRUGS (2)
  1. ISOTRETINOIN [Suspect]
     Indication: ACNE
     Route: 048
     Dates: start: 20110210, end: 20111031
  2. DIANE [Concomitant]
     Dates: end: 20111201

REACTIONS (1)
  - PREGNANCY [None]
